FAERS Safety Report 11779924 (Version 2)
Quarter: 2016Q2

REPORT INFORMATION
  Report Type: Report from Study
  Country: US (occurrence: US)
  Receive Date: 20151125
  Receipt Date: 20160516
  Transmission Date: 20160815
  Serious: Yes (Hospitalization, Other)
  Sender: FDA-Public Use
  Company Number: US-AMGEN-USASL2015124118

PATIENT
  Age: 60 Year
  Sex: Female

DRUGS (2)
  1. ENBREL [Suspect]
     Active Substance: ETANERCEPT
     Dosage: 50 MG, QWK
     Route: 065
  2. ENBREL [Suspect]
     Active Substance: ETANERCEPT
     Indication: ANKYLOSING SPONDYLITIS
     Dosage: 50 MG, QWK
     Route: 065
     Dates: start: 201411

REACTIONS (12)
  - Knee arthroplasty [Unknown]
  - Wound infection [Unknown]
  - Neuropathy peripheral [Unknown]
  - Wound [Unknown]
  - Cellulitis [Unknown]
  - Laboratory test abnormal [Unknown]
  - Drug ineffective [Unknown]
  - Red blood cell count decreased [Unknown]
  - Injection site erythema [Unknown]
  - Blood disorder [Unknown]
  - Condition aggravated [Recovering/Resolving]
  - White blood cell count decreased [Unknown]

NARRATIVE: CASE EVENT DATE: 2015
